FAERS Safety Report 15435345 (Version 1)
Quarter: 2018Q4

REPORT INFORMATION
  Report Type: Spontaneous
  Country: JP (occurrence: JP)
  Receive Date: 20180927
  Receipt Date: 20180927
  Transmission Date: 20190204
  Serious: Yes (Other)
  Sender: FDA-Public Use
  Company Number: JP-ASTRAZENECA-2018SF23376

PATIENT

DRUGS (2)
  1. IRESSA [Suspect]
     Active Substance: GEFITINIB
     Indication: LUNG ADENOCARCINOMA RECURRENT
     Route: 048
  2. RAMUCIRUMAB (GENETICAL RECOMBINATION) [Suspect]
     Active Substance: RAMUCIRUMAB
     Dosage: DOSE UNKNOWN
     Route: 065

REACTIONS (2)
  - Incision site ulcer [Not Recovered/Not Resolved]
  - Dermal cyst [Unknown]
